FAERS Safety Report 8578841-9 (Version None)
Quarter: 2012Q3

REPORT INFORMATION
  Report Type: 
  Country: None (occurrence: None)
  Receive Date: 20120808
  Receipt Date: 20120802
  Transmission Date: 20120928
  Serious: Yes (Hospitalization)
  Sender: FDA-Public Use
  Company Number: PHHY2012BR067211

PATIENT
  Sex: Female

DRUGS (19)
  1. METFORMIN HCL [Concomitant]
     Indication: DIABETES MELLITUS
     Dosage: 1 DF, BID
  2. LOVAZA [Concomitant]
  3. ATENOLOL [Concomitant]
  4. ONGLYZA [Concomitant]
     Indication: DIABETES MELLITUS
     Dosage: 1 DF, UNK
  5. HYDERGINE [Suspect]
     Indication: DIZZINESS
     Dosage: 1 DF, QD
     Dates: start: 19860101
  6. SIMVASTATIN [Concomitant]
     Indication: BLOOD CHOLESTEROL INCREASED
     Dosage: 1 DF, QD
     Route: 048
  7. METOPROLOL SUCCINATE [Concomitant]
     Indication: CARDIAC DISORDER
     Dosage: 1 DF, QD
     Route: 048
  8. DIOVAN HCT [Suspect]
     Indication: HYPERTENSION
     Dosage: 1 DF, QD
  9. SERTRALINE HYDROCHLORIDE [Concomitant]
  10. DIAZEPAM [Concomitant]
     Indication: BLOOD PRESSURE INCREASED
  11. ACETAMINOPHEN [Concomitant]
     Indication: PAIN
  12. BRYONIA [Concomitant]
     Indication: BALANCE DISORDER
  13. OMEPRAZOLE [Concomitant]
  14. CLONAZEPAM [Concomitant]
     Indication: EPILEPSY
     Dosage: 1 DF, A DAY
  15. SUSTRATE [Concomitant]
     Indication: CHEST PAIN
  16. PANTOPRAZOLE [Concomitant]
  17. HYDERGINE [Suspect]
     Indication: HALLUCINATION
     Dosage: 0.3 MG/ML, UNK
  18. CIPROFIBRATE [Concomitant]
     Indication: BLOOD TRIGLYCERIDES INCREASED
     Dosage: 1 DF, QD
     Route: 048
  19. CITALOPRAM HYDROBROMIDE [Concomitant]

REACTIONS (9)
  - HYPERTENSION [None]
  - BLOOD GLUCOSE DECREASED [None]
  - SYNCOPE [None]
  - SENSATION OF HEAVINESS [None]
  - BALANCE DISORDER [None]
  - DYSPNOEA [None]
  - SENSORY LOSS [None]
  - ABNORMAL SENSATION IN EYE [None]
  - MEMORY IMPAIRMENT [None]
